FAERS Safety Report 21762207 (Version 1)
Quarter: 2022Q4

REPORT INFORMATION
  Report Type: Spontaneous
  Country: CN (occurrence: CN)
  Receive Date: 20221221
  Receipt Date: 20221221
  Transmission Date: 20230113
  Serious: Yes (Hospitalization)
  Sender: FDA-Public Use
  Company Number: CN-ELI_LILLY_AND_COMPANY-CN202212009048

PATIENT
  Age: 44 Year
  Sex: Female
  Weight: 56.5 kg

DRUGS (2)
  1. CYMBALTA [Suspect]
     Active Substance: DULOXETINE HYDROCHLORIDE
     Indication: Generalised anxiety disorder
     Dosage: 60 MG, BID
     Route: 048
     Dates: start: 20221013, end: 20221130
  2. AGOMELATINE [Suspect]
     Active Substance: AGOMELATINE
     Indication: Generalised anxiety disorder
     Dosage: 25 MG, DAILY
     Route: 048
     Dates: start: 20221020, end: 20221118

REACTIONS (1)
  - Hepatic function abnormal [Recovering/Resolving]

NARRATIVE: CASE EVENT DATE: 20221118
